FAERS Safety Report 23366480 (Version 2)
Quarter: 2024Q1

REPORT INFORMATION
  Report Type: Spontaneous
  Country: DE (occurrence: DE)
  Receive Date: 20240104
  Receipt Date: 20240116
  Transmission Date: 20240410
  Serious: Yes (Hospitalization)
  Sender: FDA-Public Use
  Company Number: DE-BAYER-2024A000579

PATIENT
  Age: 53 Year
  Sex: Female

DRUGS (1)
  1. GADOBUTROL [Suspect]
     Active Substance: GADOBUTROL
     Indication: Magnetic resonance imaging
     Dosage: UNK, ONCE
     Dates: start: 20231106, end: 20231106

REACTIONS (9)
  - Mucosal dryness [None]
  - Mucosal erosion [None]
  - Epistaxis [None]
  - Increased need for sleep [None]
  - Fatigue [None]
  - Constipation [None]
  - Disturbance in attention [None]
  - Nontherapeutic agent blood positive [None]
  - Contrast media deposition [None]

NARRATIVE: CASE EVENT DATE: 20231227
